FAERS Safety Report 7873940-9 (Version None)
Quarter: 2011Q4

REPORT INFORMATION
  Report Type: 
  Country: None (occurrence: None)
  Receive Date: 20111030
  Receipt Date: 20110512
  Transmission Date: 20120403
  Serious: No
  Sender: FDA-Public Use
  Company Number: US-AMGEN-USASP2011024746

PATIENT
  Age: 48 Year
  Sex: Female

DRUGS (2)
  1. ENBREL [Suspect]
     Indication: RHEUMATOID ARTHRITIS
     Dosage: 50 MG, QWK
     Dates: start: 20110429
  2. METHOTREXATE [Concomitant]

REACTIONS (8)
  - HYPERHIDROSIS [None]
  - HYPOAESTHESIA [None]
  - ARTHRALGIA [None]
  - FATIGUE [None]
  - NAUSEA [None]
  - PALLOR [None]
  - ASTHENIA [None]
  - PARAESTHESIA [None]
